FAERS Safety Report 8891348 (Version 1)
Quarter: 2012Q4

REPORT INFORMATION
  Report Type: Spontaneous
  Country: US (occurrence: None)
  Receive Date: 20121105
  Receipt Date: 20121105
  Transmission Date: 20130627
  Serious: No
  Sender: FDA-Public Use
  Company Number: None

PATIENT
  Sex: Female
  Weight: 45.36 kg

DRUGS (1)
  1. MIRENA IUD [Suspect]
     Dates: start: 201010, end: 201110

REACTIONS (3)
  - Weight decreased [None]
  - Convulsion [None]
  - Supraventricular tachycardia [None]
